FAERS Safety Report 6948005-0 (Version None)
Quarter: 2010Q3

REPORT INFORMATION
  Report Type: 
  Country: None (occurrence: None)
  Receive Date: 20100828
  Receipt Date: 20091012
  Transmission Date: 20110219
  Serious: No
  Sender: FDA-Public Use
  Company Number: US-ABBOTT-09P-163-0602717-00

PATIENT
  Sex: Female
  Weight: 64.468 kg

DRUGS (10)
  1. NIASPAN [Suspect]
     Indication: BLOOD CHOLESTEROL INCREASED
     Dates: start: 20090201, end: 20090701
  2. NIASPAN [Suspect]
     Dates: start: 20090701
  3. SEPTRA DS [Concomitant]
     Indication: RESPIRATORY TRACT INFECTION
     Dates: start: 20091006
  4. MUCINEX DM [Concomitant]
     Indication: RESPIRATORY TRACT INFECTION
     Dates: start: 20091006
  5. MULTIVITAMIN WITH MINERAL [Concomitant]
     Indication: PRODUCT USED FOR UNKNOWN INDICATION
  6. CALCIUM [Concomitant]
     Indication: PRODUCT USED FOR UNKNOWN INDICATION
  7. TUMERIC [Concomitant]
     Indication: PRODUCT USED FOR UNKNOWN INDICATION
  8. HEALTHY LIPID FORMULA [Concomitant]
     Indication: PRODUCT USED FOR UNKNOWN INDICATION
  9. FLAX SEED [Concomitant]
     Indication: PRODUCT USED FOR UNKNOWN INDICATION
  10. LOVAZA [Concomitant]
     Indication: PRODUCT USED FOR UNKNOWN INDICATION

REACTIONS (4)
  - FLUSHING [None]
  - GENERALISED ERYTHEMA [None]
  - HEART RATE INCREASED [None]
  - MUSCLE SPASMS [None]
